FAERS Safety Report 23962174 (Version 1)
Quarter: 2024Q2

REPORT INFORMATION
  Report Type: Spontaneous
  Country: US (occurrence: None)
  Receive Date: 20240610
  Receipt Date: 20240610
  Transmission Date: 20240715
  Serious: Yes (Disabling)
  Sender: FDA-Public Use
  Company Number: None

PATIENT
  Age: 77 Year
  Sex: Male
  Weight: 117 kg

DRUGS (1)
  1. DUPIXENT [Suspect]
     Active Substance: DUPILUMAB
     Indication: Asthma
     Dosage: OTHER QUANTITY : 1 INJECTION(S)?OTHER FREQUENCY : 2 WEEKS?
     Route: 030
     Dates: start: 20240502, end: 20240530

REACTIONS (5)
  - Oral herpes [None]
  - Arthralgia [None]
  - Dyspnoea [None]
  - Flatulence [None]
  - Asthenia [None]

NARRATIVE: CASE EVENT DATE: 20240608
